FAERS Safety Report 5987622-1 (Version None)
Quarter: 2008Q4

REPORT INFORMATION
  Report Type: 
  Country: None (occurrence: None)
  Receive Date: 20081209
  Receipt Date: 20081118
  Transmission Date: 20090506
  Serious: No
  Sender: FDA-Public Use
  Company Number: US-B.I. PHARMACEUTICALS,INC./RIDGEFIELD-2008-BP-17460BP

PATIENT
  Age: 68 Year
  Sex: Male

DRUGS (10)
  1. FLOMAX [Suspect]
     Indication: BENIGN PROSTATIC HYPERPLASIA
     Dosage: .4MG
     Route: 048
     Dates: start: 20081103, end: 20081112
  2. COUMADIN [Concomitant]
     Indication: STENT PLACEMENT
  3. CARVEDILOL [Concomitant]
     Indication: CARDIAC DISORDER
  4. LIPITOR [Concomitant]
     Indication: BLOOD CHOLESTEROL INCREASED
  5. TRIGLIDE [Concomitant]
     Indication: BLOOD CHOLESTEROL INCREASED
  6. NIASPAN [Concomitant]
     Indication: BLOOD TRIGLYCERIDES
  7. ASPIRIN [Concomitant]
     Indication: PROPHYLAXIS
  8. FOLIC ACID [Concomitant]
     Indication: PROPHYLAXIS
  9. PRILOSEC [Concomitant]
     Indication: DYSPEPSIA
  10. FLONASE [Concomitant]
     Indication: HYPERSENSITIVITY

REACTIONS (2)
  - DIZZINESS [None]
  - HYPOTENSION [None]
